FAERS Safety Report 17501219 (Version 1)
Quarter: 2020Q1

REPORT INFORMATION
  Report Type: Spontaneous
  Country: SE (occurrence: SE)
  Receive Date: 20200305
  Receipt Date: 20200305
  Transmission Date: 20200409
  Serious: Yes (Hospitalization)
  Sender: FDA-Public Use
  Company Number: NVSC2020SE061467

PATIENT
  Age: 62 Year
  Sex: Female

DRUGS (1)
  1. AMLODIPINE [Suspect]
     Active Substance: AMLODIPINE BESYLATE
     Indication: HYPERTENSION
     Dosage: UNK
     Route: 065
     Dates: start: 20191029, end: 20191101

REACTIONS (1)
  - Hypoaesthesia [Recovered/Resolved]

NARRATIVE: CASE EVENT DATE: 20191101
